FAERS Safety Report 5644027-0 (Version None)
Quarter: 2008Q1

REPORT INFORMATION
  Report Type: 
  Country: None (occurrence: None)
  Receive Date: 20080131
  Receipt Date: 20071115
  Transmission Date: 20080703
  Serious: Yes (Hospitalization)
  Sender: FDA-Public Use
  Company Number: 163-21880-07110990

PATIENT
  Age: 68 Year
  Sex: Male

DRUGS (1)
  1. REVLIMID [Suspect]
     Indication: MULTIPLE MYELOMA
     Dosage: 10 MG, ONCE DAILY AT BEDTIME, 2 WKS  ON 1 WK OFF, ORAL
     Route: 048
     Dates: start: 20070320, end: 20070901

REACTIONS (1)
  - BACTERIAL INFECTION [None]
